FAERS Safety Report 4614308-8 (Version None)
Quarter: 2005Q1

REPORT INFORMATION
  Report Type: 
  Country: None (occurrence: None)
  Receive Date: 20050315
  Receipt Date: 20050104
  Transmission Date: 20050727
  Serious: Yes (Hospitalization)
  Sender: FDA-Public Use
  Company Number: A01200500051

PATIENT
  Age: 84 Year
  Sex: Male

DRUGS (5)
  1. PLAVIX [Suspect]
     Indication: CEREBROVASCULAR ACCIDENT
     Dosage: 75 MG QOD ORAL
     Route: 048
     Dates: start: 20031230, end: 20041214
  2. KARDEGIC (ACETYLSALICYLATE LYSINE) [Concomitant]
  3. TAREG (VALSARTAN) [Concomitant]
  4. ALDALIX (FUROSEMIDE+SPIRONOLACTONE) [Concomitant]
  5. NEXIUM [Concomitant]

REACTIONS (9)
  - BARRETT'S OESOPHAGUS [None]
  - BLOOD PRESSURE DECREASED [None]
  - GASTROINTESTINAL HAEMORRHAGE [None]
  - HAEMATEMESIS [None]
  - HAEMATOCRIT DECREASED [None]
  - MELAENA [None]
  - OESOPHAGEAL ULCER HAEMORRHAGE [None]
  - PALLOR [None]
  - RED BLOOD CELL COUNT DECREASED [None]
